FAERS Safety Report 20877879 (Version 1)
Quarter: 2022Q2

REPORT INFORMATION
  Report Type: Spontaneous
  Country: US (occurrence: None)
  Receive Date: 20220525
  Receipt Date: 20220525
  Transmission Date: 20220721
  Serious: No
  Sender: FDA-Public Use
  Company Number: None

PATIENT
  Age: 67 Year
  Sex: Female
  Weight: 62.55 kg

DRUGS (14)
  1. BENLYSTA [Suspect]
     Active Substance: BELIMUMAB
     Indication: Systemic lupus erythematosus
     Dosage: OTHER QUANTITY : 4 INJECTION(S);?
     Route: 030
     Dates: start: 20220301, end: 20220515
  2. COZAAR [Concomitant]
     Active Substance: LOSARTAN POTASSIUM
  3. BACLOFEN [Concomitant]
     Active Substance: BACLOFEN
  4. CRESTOR [Concomitant]
     Active Substance: ROSUVASTATIN CALCIUM
  5. TEMAZEPAM [Concomitant]
     Active Substance: TEMAZEPAM
  6. ESTRADIOL [Concomitant]
     Active Substance: ESTRADIOL
  7. CLOBETASOL [Concomitant]
     Active Substance: CLOBETASOL
  8. IBUPROFEN [Concomitant]
     Active Substance: IBUPROFEN
  9. VITAMIN B COMPLEX [Concomitant]
     Active Substance: CYANOCOBALAMIN\DEXPANTHENOL\NIACINAMIDE\PYRIDOXINE HYDROCHLORIDE\RIBOFLAVIN 5^-PHOSPHATE SODIUM\THIA
  10. FOLIC ACID [Concomitant]
     Active Substance: FOLIC ACID
  11. ASPIRIN [Concomitant]
     Active Substance: ASPIRIN
  12. LUTEN BILLBERRY [Concomitant]
  13. OMEGA 3-9 OIL [Concomitant]
  14. COENZYME Q10 [Concomitant]
     Active Substance: DIETARY SUPPLEMENT\UBIDECARENONE

REACTIONS (9)
  - Depression [None]
  - Headache [None]
  - Burning sensation [None]
  - Pruritus [None]
  - Dizziness [None]
  - Nausea [None]
  - Anxiety [None]
  - Sleep disorder [None]
  - Rash [None]

NARRATIVE: CASE EVENT DATE: 20220509
